FAERS Safety Report 8681814 (Version 5)
Quarter: 2012Q4

REPORT INFORMATION
  Report Type: 
  Country: JP (occurrence: JP)
  Receive Date: 20120725
  Receipt Date: 20121104
  Transmission Date: 20130627
  Serious: Yes (Death, Other)
  Sender: FDA-Public Use
  Company Number: JP-JNJFOC-20120709349

PATIENT
  Age: 76 Year
  Sex: Male
  Weight: 46 kg

DRUGS (9)
  1. XARELTO [Suspect]
     Indication: THROMBOSIS PROPHYLAXIS
     Route: 048
     Dates: start: 20120627, end: 20120709
  2. WARFARIN [Suspect]
     Indication: PRODUCT USED FOR UNKNOWN INDICATION
     Route: 065
     Dates: start: 20120623, end: 20120624
  3. WARFARIN [Suspect]
     Indication: PRODUCT USED FOR UNKNOWN INDICATION
     Route: 065
  4. URINORM [Concomitant]
     Route: 048
  5. TAKEPRON [Concomitant]
     Route: 065
  6. VASOLAN [Concomitant]
     Route: 065
  7. NITRODERM TTS [Concomitant]
     Route: 062
  8. MAINTATE [Concomitant]
     Route: 048
  9. SYMMETREL [Concomitant]
     Route: 048
     Dates: start: 20120607, end: 20120620

REACTIONS (3)
  - Pulmonary alveolar haemorrhage [Fatal]
  - Acute respiratory distress syndrome [Fatal]
  - Interstitial lung disease [Unknown]
